FAERS Safety Report 25819637 (Version 1)
Quarter: 2025Q3

REPORT INFORMATION
  Report Type: Spontaneous
  Country: US (occurrence: US)
  Receive Date: 20250918
  Receipt Date: 20250918
  Transmission Date: 20251020
  Serious: No
  Sender: SANOFI AVENTIS
  Company Number: US-SA-2025SA276413

PATIENT
  Sex: Male

DRUGS (2)
  1. DUPIXENT [Suspect]
     Active Substance: DUPILUMAB
     Indication: Dermatitis atopic
     Route: 058
     Dates: start: 20180908
  2. ADVIL [Concomitant]
     Active Substance: IBUPROFEN

REACTIONS (3)
  - Rash [Not Recovered/Not Resolved]
  - Discomfort [Unknown]
  - Sleep disorder due to a general medical condition [Unknown]
